FAERS Safety Report 8342734-2 (Version None)
Quarter: 2012Q2

REPORT INFORMATION
  Report Type: 
  Country: None (occurrence: None)
  Receive Date: 20120503
  Receipt Date: 20120420
  Transmission Date: 20120825
  Serious: Yes (Hospitalization)
  Sender: FDA-Public Use
  Company Number: 2012CP000046

PATIENT
  Age: 51 Year
  Sex: Male

DRUGS (9)
  1. KETAMINE HCL [Suspect]
     Indication: GENERAL ANAESTHESIA
     Dosage: 20 MG;   ; IV
     Route: 042
     Dates: start: 20111108
  2. SOLU-MEDROL [Suspect]
     Dosage: 80 MG;  ; IV
     Route: 042
     Dates: start: 20111108
  3. ACUPAN [Suspect]
     Indication: ANALGESIC THERAPY
     Dosage: 20 MG; 1 DAY; IV
     Route: 042
     Dates: start: 20111108, end: 20111109
  4. MORPHINE SULFATE INJ [Suspect]
     Indication: GENERAL ANAESTHESIA
     Dosage: ;IV
     Route: 042
     Dates: start: 20111108
  5. ACETAMINOPHEN [Suspect]
     Indication: ANALGESIC THERAPY
     Dosage: 1 GM; 4/1 DAY; IV
     Route: 042
     Dates: start: 20111108, end: 20111110
  6. MIDAZOLAM HCL [Suspect]
     Indication: GENERAL ANAESTHESIA
     Dosage: 1 DOSAGE FORM; IV
     Route: 042
     Dates: start: 20111108
  7. XANAX [Suspect]
     Indication: PREMEDICATION
     Dosage: 1 MG;   ;PO
     Route: 048
     Dates: start: 20111108
  8. CEFAZOLIN SODIUM [Suspect]
     Dosage: 2 GRAM;   ; IV
     Route: 042
     Dates: start: 20111108
  9. DIPRIVAN [Suspect]
     Indication: GENERAL ANAESTHESIA
     Dosage: 300 MG;   ; IV
     Route: 042
     Dates: start: 20111108

REACTIONS (2)
  - PANCREATITIS ACUTE [None]
  - PANCREATIC NECROSIS [None]
